FAERS Safety Report 11198412 (Version 3)
Quarter: 2015Q3

REPORT INFORMATION
  Report Type: Spontaneous
  Country: US (occurrence: US)
  Receive Date: 20150618
  Receipt Date: 20150910
  Transmission Date: 20151125
  Serious: No
  Sender: FDA-Public Use
  Company Number: US-AMGEN-USASP2015056737

PATIENT
  Age: 55 Year
  Sex: Female
  Weight: 85.99 kg

DRUGS (13)
  1. HYDROCHLOROTHIAZIDE AND LISINOPRIL [Concomitant]
     Active Substance: HYDROCHLOROTHIAZIDE\LISINOPRIL
     Indication: BLOOD PRESSURE MEASUREMENT
     Dosage: 20/12.5 MG, QD
     Route: 048
     Dates: start: 20130818
  2. NAPROXEN. [Concomitant]
     Active Substance: NAPROXEN
     Indication: PAIN
     Dosage: 500 MG, BID
     Route: 048
     Dates: start: 20040211
  3. ACETAMINOPHEN. [Concomitant]
     Active Substance: ACETAMINOPHEN
     Dosage: UNK
  4. HYDROXYCHLOROQUINE SULFATE. [Concomitant]
     Active Substance: HYDROXYCHLOROQUINE SULFATE
     Indication: RHEUMATOID ARTHRITIS
  5. HYDROXYCHLOROQUINE SULFATE. [Concomitant]
     Active Substance: HYDROXYCHLOROQUINE SULFATE
     Indication: PAIN
     Dosage: 200 MG, BID
     Route: 048
     Dates: start: 20040211
  6. AMLODIPINE BESYLATE. [Concomitant]
     Active Substance: AMLODIPINE BESYLATE
     Indication: BLOOD PRESSURE MEASUREMENT
     Dosage: 10 MG, QD
     Route: 048
     Dates: start: 20050315
  7. METHOTREXATE [Concomitant]
     Active Substance: METHOTREXATE
     Indication: RHEUMATOID ARTHRITIS
  8. FOLIC ACID. [Concomitant]
     Active Substance: FOLIC ACID
     Indication: SUPPLEMENTATION THERAPY
     Dosage: 1 MG, 4 TABLET QD
     Route: 048
     Dates: start: 20040211
  9. SULFAZINE [Concomitant]
     Active Substance: SULFASALAZINE
     Indication: PAIN
     Dosage: 500 MG, 3 TABLET BID
     Route: 048
     Dates: start: 20050315, end: 20141029
  10. SULFAZINE [Concomitant]
     Active Substance: SULFASALAZINE
     Indication: RHEUMATOID ARTHRITIS
  11. METHOTREXATE [Concomitant]
     Active Substance: METHOTREXATE
     Indication: PAIN
     Dosage: 2.5 MG, 9 TABLETS QWK
     Route: 048
     Dates: start: 20050315, end: 20141029
  12. ENBREL [Suspect]
     Active Substance: ETANERCEPT
     Indication: RHEUMATOID ARTHRITIS
     Dosage: 50 MG, QWK
     Route: 065
     Dates: start: 20130612, end: 20141029
  13. ENBREL [Suspect]
     Active Substance: ETANERCEPT
     Indication: OSTEOARTHRITIS
     Dosage: UNK
     Route: 065

REACTIONS (15)
  - Rash pruritic [Recovered/Resolved]
  - Fluid retention [Not Recovered/Not Resolved]
  - Mobility decreased [Unknown]
  - Bone disorder [Unknown]
  - Pain [Recovering/Resolving]
  - Sensitivity to weather change [Unknown]
  - Musculoskeletal disorder [Unknown]
  - Rash erythematous [Recovered/Resolved]
  - Chemical injury [Unknown]
  - Back pain [Recovering/Resolving]
  - Arthralgia [Recovering/Resolving]
  - Asthenia [Not Recovered/Not Resolved]
  - Plantar fasciitis [Recovering/Resolving]
  - Oedema peripheral [Not Recovered/Not Resolved]
  - Blood potassium decreased [Not Recovered/Not Resolved]

NARRATIVE: CASE EVENT DATE: 201410
